FAERS Safety Report 5925545-4 (Version None)
Quarter: 2008Q4

REPORT INFORMATION
  Report Type: 
  Country: None (occurrence: None)
  Receive Date: 20081021
  Receipt Date: 20081017
  Transmission Date: 20090506
  Serious: Yes (Life-Threatening, Hospitalization)
  Sender: FDA-Public Use
  Company Number: PHEH2008US08877

PATIENT
  Sex: Female
  Weight: 54 kg

DRUGS (10)
  1. LAMPRENE [Suspect]
     Indication: MYCOBACTERIUM AVIUM COMPLEX INFECTION
     Dosage: 100 MG, QD
     Route: 048
     Dates: start: 20080418, end: 20080914
  2. AZITHROMYCIN [Concomitant]
     Indication: MYCOBACTERIUM AVIUM COMPLEX INFECTION
     Dosage: 500 MG, TID
     Route: 048
  3. ETHAMBUTOL HYDROCHLORIDE [Concomitant]
     Indication: MYCOBACTERIUM AVIUM COMPLEX INFECTION
     Dosage: 1000 MG, QD
     Route: 048
  4. ATIVAN [Concomitant]
  5. CELEBREX [Concomitant]
  6. COLAZAL [Concomitant]
  7. LEVOTHROID [Concomitant]
  8. PRAVACHOL [Concomitant]
  9. ZOLOFT [Concomitant]
  10. PROTONIX [Concomitant]

REACTIONS (9)
  - ABDOMINAL PAIN [None]
  - ACUTE RESPIRATORY DISTRESS SYNDROME [None]
  - GASTRECTOMY [None]
  - GASTRIC PERFORATION [None]
  - HIATUS HERNIA [None]
  - LAPAROSCOPIC SURGERY [None]
  - PATHOLOGY TEST [None]
  - POST PROCEDURAL COMPLICATION [None]
  - SOFT TISSUE NECROSIS [None]
